FAERS Safety Report 13458414 (Version 2)
Quarter: 2017Q2

REPORT INFORMATION
  Report Type: Spontaneous
  Country: US (occurrence: US)
  Receive Date: 20170419
  Receipt Date: 20170627
  Transmission Date: 20170830
  Serious: Yes (Hospitalization, Other)
  Sender: FDA-Public Use
  Company Number: US-AKORN PHARMACEUTICALS-2017AKN00459

PATIENT
  Sex: Female
  Weight: 56.8 kg

DRUGS (1)
  1. MYORISAN [Suspect]
     Active Substance: ISOTRETINOIN
     Indication: ACNE
     Dosage: 30 MG, 2X/DAY
     Dates: end: 20170330

REACTIONS (7)
  - Suicidal ideation [Recovered/Resolved]
  - Substance use [Not Recovered/Not Resolved]
  - Depressed mood [Recovering/Resolving]
  - Homicidal ideation [Recovered/Resolved]
  - Anxiety [Recovering/Resolving]
  - Hallucination, visual [Unknown]
  - Post-traumatic stress disorder [Recovering/Resolving]

NARRATIVE: CASE EVENT DATE: 2017
